FAERS Safety Report 5961634-6 (Version None)
Quarter: 2008Q4

REPORT INFORMATION
  Report Type: 
  Country: None (occurrence: None)
  Receive Date: 20081121
  Receipt Date: 20081112
  Transmission Date: 20090506
  Serious: Yes (Disabling)
  Sender: FDA-Public Use
  Company Number: PL-AVENTIS-200820663GDDC

PATIENT
  Age: 15 Year
  Sex: Female

DRUGS (5)
  1. TELFAST                            /01314201/ [Suspect]
     Route: 048
     Dates: end: 20080923
  2. TELFAST                            /01314201/ [Suspect]
     Route: 048
     Dates: end: 20080923
  3. CLARINASE                          /01011501/ [Suspect]
     Dosage: DOSE QUANTITY: 2
     Dates: end: 20080923
  4. CLARINASE                          /01011501/ [Suspect]
     Dosage: DOSE QUANTITY: 2
     Dates: end: 20080923
  5. UNKNOWN DRUG [Concomitant]

REACTIONS (3)
  - BALANCE DISORDER [None]
  - DIPLOPIA [None]
  - SEDATION [None]
